FAERS Safety Report 8505109-9 (Version None)
Quarter: 2012Q3

REPORT INFORMATION
  Report Type: 
  Country: None (occurrence: None)
  Receive Date: 20120712
  Receipt Date: 20120706
  Transmission Date: 20120928
  Serious: Yes (Death)
  Sender: FDA-Public Use
  Company Number: PHEH2011US010598

PATIENT
  Sex: Female

DRUGS (7)
  1. VALIUM [Concomitant]
     Dosage: UNK UKN, OT
  2. PROZAC [Concomitant]
     Dosage: UNK UKN, OT
  3. BACLOFEN [Concomitant]
     Dosage: UNK UKN, OT
  4. MORPHINE [Concomitant]
     Dosage: UNK UKN, OT
  5. TRAZODONE HYDROCHLORIDE [Concomitant]
     Dosage: UNK UKN, OT
  6. ABILIFY [Concomitant]
     Dosage: UNK UKN, OT
  7. GILENYA [Suspect]
     Indication: MULTIPLE SCLEROSIS
     Dosage: 0.5 MG, QD
     Route: 048
     Dates: start: 20110501

REACTIONS (4)
  - VITAMIN D DEFICIENCY [None]
  - WHITE BLOOD CELL COUNT DECREASED [None]
  - DEATH [None]
  - VITAMIN B COMPLEX DEFICIENCY [None]
